FAERS Safety Report 4333223-0 (Version None)
Quarter: 2004Q2

REPORT INFORMATION
  Report Type: 
  Country: None (occurrence: None)
  Receive Date: 20040405
  Receipt Date: 20040405
  Transmission Date: 20050107
  Serious: No
  Sender: FDA-Public Use
  Company Number: None

PATIENT
  Sex: Female
  Weight: 52.1637 kg

DRUGS (2)
  1. TRI-SPRINTEC [Suspect]
     Indication: ACNE
     Dates: start: 20040101, end: 20040329
  2. TRI-SPRINTEC [Suspect]
     Indication: CONTRACEPTION
     Dates: start: 20040101, end: 20040329

REACTIONS (3)
  - MENORRHAGIA [None]
  - MUSCLE CRAMP [None]
  - PHARMACEUTICAL PRODUCT COMPLAINT [None]
